FAERS Safety Report 13012633 (Version 1)
Quarter: 2016Q4

REPORT INFORMATION
  Report Type: Spontaneous
  Country: US (occurrence: US)
  Receive Date: 20161208
  Receipt Date: 20161208
  Transmission Date: 20170207
  Serious: Yes (Disabling)
  Sender: FDA-Public Use
  Company Number: None

PATIENT
  Age: 58 Year
  Sex: Female
  Weight: 59.88 kg

DRUGS (14)
  1. ZYPREXA [Suspect]
     Active Substance: OLANZAPINE
     Indication: INCREASED APPETITE
     Dosage: 1 X DAY PILL
     Route: 048
     Dates: start: 20161022, end: 20161030
  2. TRUVADA [Concomitant]
     Active Substance: EMTRICITABINE\TENOFOVIR DISOPROXIL FUMARATE
  3. ALPRAZOLAM. [Concomitant]
     Active Substance: ALPRAZOLAM
  4. ZYPREXA [Suspect]
     Active Substance: OLANZAPINE
     Indication: HIV INFECTION
     Dosage: 1 X DAY PILL
     Route: 048
     Dates: start: 20161022, end: 20161030
  5. ZYPREXA [Suspect]
     Active Substance: OLANZAPINE
     Indication: WEIGHT DECREASED
     Dosage: 1 X DAY PILL
     Route: 048
     Dates: start: 20161022, end: 20161030
  6. MAGNESIUM [Concomitant]
     Active Substance: MAGNESIUM
  7. LITHIUM. [Concomitant]
     Active Substance: LITHIUM
  8. VALTREX [Concomitant]
     Active Substance: VALACYCLOVIR HYDROCHLORIDE
  9. IRON [Concomitant]
     Active Substance: IRON
  10. ISENTRESS [Concomitant]
     Active Substance: RALTEGRAVIR POTASSIUM
  11. VITAMIN C [Concomitant]
     Active Substance: ASCORBIC ACID
  12. BIOTIN [Concomitant]
     Active Substance: BIOTIN
  13. COQ10 [Concomitant]
     Active Substance: UBIDECARENONE
  14. ACIDOPHILUS [Concomitant]
     Active Substance: LACTOBACILLUS ACIDOPHILUS

REACTIONS (8)
  - Fatigue [None]
  - Weight increased [None]
  - Dyspnoea [None]
  - Eating disorder [None]
  - Amnesia [None]
  - Disturbance in attention [None]
  - Palpitations [None]
  - Somnambulism [None]

NARRATIVE: CASE EVENT DATE: 20161022
